FAERS Safety Report 7765875-7 (Version None)
Quarter: 2011Q3

REPORT INFORMATION
  Report Type: 
  Country: None (occurrence: None)
  Receive Date: 20110921
  Receipt Date: 20110908
  Transmission Date: 20111222
  Serious: Yes (Hospitalization)
  Sender: FDA-Public Use
  Company Number: GB-ELI_LILLY_AND_COMPANY-GB201109002291

PATIENT
  Sex: Male

DRUGS (1)
  1. ZYPREXA [Suspect]
     Dosage: UNK
     Dates: end: 20110808

REACTIONS (8)
  - HEADACHE [None]
  - WEIGHT INCREASED [None]
  - ADVERSE REACTION [None]
  - INSOMNIA [None]
  - WITHDRAWAL SYNDROME [None]
  - AGITATION [None]
  - DEPRESSION [None]
  - ANXIETY [None]
